FAERS Safety Report 23213290 (Version 1)
Quarter: 2023Q4

REPORT INFORMATION
  Report Type: Spontaneous
  Country: CN (occurrence: CN)
  Receive Date: 20231121
  Receipt Date: 20231121
  Transmission Date: 20240110
  Serious: Yes (Other)
  Sender: FDA-Public Use
  Company Number: CN-SUN PHARMACEUTICAL INDUSTRIES LTD-2023R1-419173

PATIENT
  Age: 50 Year
  Sex: Female

DRUGS (7)
  1. FEBUXOSTAT [Suspect]
     Active Substance: FEBUXOSTAT
     Indication: End stage renal disease
     Dosage: 40 MILLIGRAM, DAILY
     Route: 065
  2. FELODIPINE [Suspect]
     Active Substance: FELODIPINE
     Indication: End stage renal disease
     Dosage: 5 MILLIGRAM, BID
     Route: 065
  3. BERAPROST SODIUM [Suspect]
     Active Substance: BERAPROST SODIUM
     Indication: End stage renal disease
     Dosage: 40 MICROGRAM, TID
     Route: 065
  4. CALCIUM DOBESILATE [Suspect]
     Active Substance: CALCIUM DOBESILATE
     Indication: End stage renal disease
     Dosage: 0.5 GRAM, TID
     Route: 065
  5. ROXADUSTAT [Suspect]
     Active Substance: ROXADUSTAT
     Indication: End stage renal disease
     Dosage: UNK (120 MG,3 TIMES PER WEEK)
     Route: 065
  6. alpha-ketoacid [Concomitant]
     Indication: End stage renal disease
     Dosage: 3.78 GRAM, TID
     Route: 065
  7. SODIUM BICARBONATE [Concomitant]
     Active Substance: SODIUM BICARBONATE
     Indication: End stage renal disease
     Dosage: 1 GRAM, TID
     Route: 065

REACTIONS (1)
  - Myelosuppression [Unknown]
